FAERS Safety Report 4519418-1 (Version None)
Quarter: 2004Q4

REPORT INFORMATION
  Report Type: 
  Country: None (occurrence: None)
  Receive Date: 20041202
  Receipt Date: 20041125
  Transmission Date: 20050328
  Serious: Yes (Hospitalization)
  Sender: FDA-Public Use
  Company Number: 200413259GDS

PATIENT
  Age: 79 Year
  Sex: Female

DRUGS (4)
  1. ASPIRIN [Suspect]
     Dosage: 100 MG, TOTAL DAILY, ORAL
     Route: 048
  2. LISINOPRIL [Concomitant]
  3. NIFEDIPINE [Concomitant]
  4. NEUROTROPIN [Concomitant]

REACTIONS (24)
  - ACUTE PRERENAL FAILURE [None]
  - ACUTE RESPIRATORY DISTRESS SYNDROME [None]
  - ANAEMIA [None]
  - ANTITHROMBIN III DECREASED [None]
  - AORTIC DISSECTION [None]
  - BACTERIA SPUTUM IDENTIFIED [None]
  - CARDIAC TAMPONADE [None]
  - CHEST PAIN [None]
  - DISSEMINATED INTRAVASCULAR COAGULATION [None]
  - ESCHERICHIA INFECTION [None]
  - HAEMATOMA [None]
  - HYPOALBUMINAEMIA [None]
  - LOSS OF CONSCIOUSNESS [None]
  - MALNUTRITION [None]
  - PERICARDIAL EFFUSION [None]
  - PERICARDIAL HAEMORRHAGE [None]
  - PLATELET COUNT DECREASED [None]
  - PNEUMOCOCCAL INFECTION [None]
  - PNEUMONIA [None]
  - PROTHROMBIN TIME PROLONGED [None]
  - SEPTIC SHOCK [None]
  - SHOCK [None]
  - THROMBOSIS [None]
  - URINARY TRACT INFECTION [None]
